FAERS Safety Report 7568628-8 (Version None)
Quarter: 2011Q2

REPORT INFORMATION
  Report Type: 
  Country: None (occurrence: None)
  Receive Date: 20110623
  Receipt Date: 20110615
  Transmission Date: 20111010
  Serious: Yes (Other)
  Sender: FDA-Public Use
  Company Number: PHHY2011GB52481

PATIENT
  Age: 15 Month
  Sex: Male
  Weight: 10.4 kg

DRUGS (7)
  1. VANCOMYCIN [Interacting]
     Indication: ENDOCARDITIS
     Dosage: 550 MG, UNK
     Route: 042
     Dates: start: 20110502, end: 20110526
  2. ASPIRIN [Concomitant]
     Indication: ANTIPLATELET THERAPY
     Dosage: 45 MG, UNK
     Route: 048
     Dates: start: 20110415
  3. FUROSEMIDE [Interacting]
     Dosage: 5 MG, UNK
     Route: 048
     Dates: start: 20100305, end: 20110528
  4. SPIRONOLACTONE [Concomitant]
     Indication: DIABETES MELLITUS
     Dosage: 5 MG, UNK
     Route: 048
     Dates: start: 20110305, end: 20110528
  5. RIFAMPICIN [Suspect]
     Indication: ENDOCARDITIS
     Dosage: 68 MG, UNK
     Route: 048
     Dates: start: 20110502, end: 20110526
  6. NYSTATIN [Concomitant]
     Indication: CANDIDIASIS
     Dosage: 100000 IU, UNK
     Route: 048
     Dates: start: 20110524, end: 20110531
  7. CEFOTAXIME [Interacting]
     Indication: ENDOCARDITIS
     Dosage: 500 MG, UNK
     Route: 042
     Dates: start: 20110502, end: 20110526

REACTIONS (3)
  - DRUG INTERACTION [None]
  - RASH ERYTHEMATOUS [None]
  - PAPULE [None]
